FAERS Safety Report 16159938 (Version 1)
Quarter: 2019Q2

REPORT INFORMATION
  Report Type: Spontaneous
  Country: KR (occurrence: KR)
  Receive Date: 20190404
  Receipt Date: 20190404
  Transmission Date: 20190711
  Serious: Yes (Hospitalization, Other)
  Sender: FDA-Public Use
  Company Number: KR-009507513-1903KOR003934

PATIENT
  Sex: Female

DRUGS (11)
  1. KEYTRUDA [Suspect]
     Active Substance: PEMBROLIZUMAB
     Dosage: UNK UNK, Q3W, QUANTITY 2, DAYS 1
     Dates: start: 20190325
  2. KEYTRUDA [Suspect]
     Active Substance: PEMBROLIZUMAB
     Indication: OVARIAN CANCER
     Dosage: UNK,EVERY THREE WEEKS
     Dates: start: 20190224
  3. NESP [Concomitant]
     Active Substance: DARBEPOETIN ALFA
     Dosage: PREFILLED SYRINGE 120
     Dates: start: 20180223
  4. ALBUMIN HUMAN [Concomitant]
     Active Substance: ALBUMIN HUMAN
     Dosage: UNK
     Dates: start: 20190223, end: 20190227
  5. CAREGARGLE [Concomitant]
     Dosage: FORMULATION: SOLUTION
     Dates: start: 20190223
  6. LIXIANA [Concomitant]
     Active Substance: EDOXABAN TOSYLATE
     Dosage: UNK
     Dates: start: 20190223, end: 20190224
  7. KETOPROFEN. [Concomitant]
     Active Substance: KETOPROFEN
     Dosage: CONCENTRATION: 100MG/2ML
     Dates: start: 20190223
  8. URSA TABLETS [Concomitant]
     Dosage: UNK
     Dates: start: 20190223
  9. FERROMAX (IRON DEXTRAN) [Concomitant]
     Dosage: FORMULATION: SOLUTION
     Dates: start: 20190223, end: 20190226
  10. MEGACE F [Concomitant]
     Dosage: UNK
     Dates: start: 20190223, end: 20190226
  11. SMECTA [Concomitant]
     Active Substance: MONTMORILLONITE
     Dosage: UNK
     Dates: start: 20190223, end: 20190225

REACTIONS (3)
  - Product use in unapproved indication [Unknown]
  - Adverse event [Unknown]
  - Transfusion [Unknown]

NARRATIVE: CASE EVENT DATE: 201902
